FAERS Safety Report 7056172-6 (Version None)
Quarter: 2010Q4

REPORT INFORMATION
  Report Type: 
  Country: None (occurrence: None)
  Receive Date: 20101018
  Receipt Date: 20100928
  Transmission Date: 20110411
  Serious: No
  Sender: FDA-Public Use
  Company Number: 2010-00855

PATIENT
  Age: 39 Year
  Sex: Male
  Weight: 103.4201 kg

DRUGS (3)
  1. ZICAM COLD REMEDY GEL SWABS [Suspect]
     Dosage: QID X 2 DAYS
     Dates: start: 20100927, end: 20100928
  2. PRILOSEC [Concomitant]
  3. CLONIDINE [Concomitant]

REACTIONS (2)
  - AGEUSIA [None]
  - ANOSMIA [None]
